FAERS Safety Report 16727161 (Version 1)
Quarter: 2019Q3

REPORT INFORMATION
  Report Type: Spontaneous
  Country: US (occurrence: US)
  Receive Date: 20190822
  Receipt Date: 20190822
  Transmission Date: 20191005
  Serious: No
  Sender: FDA-Public Use
  Company Number: US-JNJFOC-20190819069

PATIENT
  Age: 79 Year
  Sex: Female
  Weight: 61.74 kg

DRUGS (2)
  1. ZYRTEC [Suspect]
     Active Substance: CETIRIZINE HYDROCHLORIDE
     Indication: FLUID RETENTION
     Dosage: ONE TABLET ONCE DAILY?DATE OF LAST ADMIN: 12-AUG-2019
     Route: 048
     Dates: start: 20190812
  2. ZYRTEC [Suspect]
     Active Substance: CETIRIZINE HYDROCHLORIDE
     Indication: HEAD DISCOMFORT

REACTIONS (3)
  - Product use in unapproved indication [Recovered/Resolved]
  - Product complaint [Unknown]
  - Feeling abnormal [Recovered/Resolved]

NARRATIVE: CASE EVENT DATE: 20190812
